FAERS Safety Report 9416817 (Version 2)
Quarter: 2014Q3

REPORT INFORMATION
  Report Type: Spontaneous
  Country: US (occurrence: US)
  Receive Date: 20130724
  Receipt Date: 20140723
  Transmission Date: 20150326
  Serious: No
  Sender: FDA-Public Use
  Company Number: US-GALDERMA-US13001653

PATIENT
  Age: 77 Year
  Sex: Female
  Weight: 64 kg

DRUGS (8)
  1. ORACEA [Suspect]
     Active Substance: DOXYCYCLINE
     Indication: OCULAR ROSACEA
  2. DIOVAN [Concomitant]
     Active Substance: VALSARTAN
     Indication: HYPERTENSION
     Route: 048
  3. LIQUID ANTACIDS [Concomitant]
  4. OMEPRAZOLE. [Concomitant]
     Active Substance: OMEPRAZOLE
  5. CENTRUM SILVER MULTIVITAMINS [Concomitant]
     Route: 048
  6. CALCIUM SUPPLEMENT [Concomitant]
     Active Substance: CALCIUM
     Route: 048
  7. SIMVASTATIN. [Concomitant]
     Active Substance: SIMVASTATIN
     Indication: BLOOD CHOLESTEROL INCREASED
     Route: 048
  8. ORACEA [Suspect]
     Active Substance: DOXYCYCLINE
     Indication: SEBORRHOEIC DERMATITIS
     Route: 048
     Dates: start: 20130514, end: 20130518

REACTIONS (3)
  - Off label use [Recovered/Resolved]
  - Drug ineffective for unapproved indication [Not Recovered/Not Resolved]
  - Skin exfoliation [Not Recovered/Not Resolved]

NARRATIVE: CASE EVENT DATE: 20130514
